FAERS Safety Report 8254656-6 (Version None)
Quarter: 2012Q1

REPORT INFORMATION
  Report Type: 
  Country: None (occurrence: None)
  Receive Date: 20120329
  Receipt Date: 20110830
  Transmission Date: 20120608
  Serious: No
  Sender: FDA-Public Use
  Company Number: 2011P1008623

PATIENT
  Age: 69 Year
  Sex: Male
  Weight: 67.586 kg

DRUGS (1)
  1. NYSTATIN [Suspect]
     Indication: DECUBITUS ULCER
     Dosage: HS; TOP
     Route: 061
     Dates: start: 20110823, end: 20110828

REACTIONS (2)
  - APPLICATION SITE REACTION [None]
  - URTICARIA [None]
